FAERS Safety Report 9230099 (Version 2)
Quarter: 2013Q2

REPORT INFORMATION
  Report Type: Spontaneous
  Country: FR (occurrence: FR)
  Receive Date: 20130415
  Receipt Date: 20130429
  Transmission Date: 20140414
  Serious: Yes (Hospitalization)
  Sender: FDA-Public Use
  Company Number: FR-JNJFOC-20130406851

PATIENT
  Age: 67 Year
  Sex: Male

DRUGS (7)
  1. IXPRIM [Suspect]
     Indication: PROCEDURAL PAIN
     Route: 048
     Dates: start: 20130109, end: 20130204
  2. XARELTO [Suspect]
     Indication: PROPHYLAXIS
     Route: 048
     Dates: start: 20130109, end: 20130205
  3. ATACAND [Suspect]
     Indication: HYPERTENSION
     Route: 048
     Dates: start: 20130122, end: 20130207
  4. MYOLASTAN [Suspect]
     Indication: PRODUCT USED FOR UNKNOWN INDICATION
     Route: 048
     Dates: start: 20130109, end: 20130207
  5. INEGY [Concomitant]
     Route: 048
  6. KENZEN [Concomitant]
     Route: 048
     Dates: end: 20130122
  7. METFORMINE [Concomitant]
     Indication: DIABETES MELLITUS
     Route: 048
     Dates: end: 20130205

REACTIONS (1)
  - Lichenoid keratosis [Not Recovered/Not Resolved]
